FAERS Safety Report 10257662 (Version 1)
Quarter: 2014Q2

REPORT INFORMATION
  Report Type: Spontaneous
  Country: US (occurrence: None)
  Receive Date: 20140623
  Receipt Date: 20140623
  Transmission Date: 20141212
  Serious: Yes (Life-Threatening, Hospitalization)
  Sender: FDA-Public Use
  Company Number: None

PATIENT
  Age: 15 Year
  Sex: Female
  Weight: 54.43 kg

DRUGS (1)
  1. CLARITHROMYCIN [Suspect]
     Indication: SINUSITIS
     Dosage: 1   TWICE DAILY TAKEN BY MOUTH
     Route: 048
     Dates: start: 20140425, end: 20140501

REACTIONS (4)
  - Malaise [None]
  - Fatigue [None]
  - Confusional state [None]
  - Guillain-Barre syndrome [None]
